FAERS Safety Report 13951330 (Version 1)
Quarter: 2017Q3

REPORT INFORMATION
  Report Type: Spontaneous
  Country: US (occurrence: US)
  Receive Date: 20170908
  Receipt Date: 20170908
  Transmission Date: 20171128
  Serious: No
  Sender: FDA-Public Use
  Company Number: US-JAZZ-2017-US-009079

PATIENT
  Sex: Female

DRUGS (21)
  1. HUMALOG MIX50/50 [Concomitant]
     Active Substance: INSULIN LISPRO
  2. TRETINOIN. [Concomitant]
     Active Substance: TRETINOIN
  3. HUMALOG [Concomitant]
     Active Substance: INSULIN LISPRO
  4. TRIAMCINOLONE [Concomitant]
     Active Substance: TRIAMCINOLONE
  5. HYDROXYZINE HCL [Concomitant]
     Active Substance: HYDROXYZINE HYDROCHLORIDE
  6. PROZAC [Concomitant]
     Active Substance: FLUOXETINE HYDROCHLORIDE
  7. XYREM [Suspect]
     Active Substance: SODIUM OXYBATE
     Dosage: 3.5G, QD
     Route: 048
     Dates: start: 201612, end: 201706
  8. NUVIGIL [Concomitant]
     Active Substance: ARMODAFINIL
  9. WELLBUTRIN [Concomitant]
     Active Substance: BUPROPION HYDROCHLORIDE
  10. XYREM [Suspect]
     Active Substance: SODIUM OXYBATE
     Indication: NARCOLEPSY
     Dosage: 1.5G, BID
     Route: 048
     Dates: start: 201412, end: 201501
  11. GLUCAGON. [Concomitant]
     Active Substance: GLUCAGON
  12. NOVOLOG [Concomitant]
     Active Substance: INSULIN ASPART
  13. FLUOXETINE HCL [Concomitant]
     Active Substance: FLUOXETINE HYDROCHLORIDE
  14. XYREM [Suspect]
     Active Substance: SODIUM OXYBATE
     Dosage: 3G, QD
     Route: 048
     Dates: start: 201612, end: 201706
  15. DOXYCYCLINE HYCLATE. [Concomitant]
     Active Substance: DOXYCYCLINE HYCLATE
  16. CONTOUR                            /01479302/ [Concomitant]
  17. XYREM [Suspect]
     Active Substance: SODIUM OXYBATE
     Dosage: DOSE ADJUSTMENT
     Route: 048
     Dates: start: 201501, end: 201612
  18. ADDERALL [Concomitant]
     Active Substance: AMPHETAMINE ASPARTATE\AMPHETAMINE SULFATE\DEXTROAMPHETAMINE SACCHARATE\DEXTROAMPHETAMINE SULFATE
  19. CLINDAMYCIN. [Concomitant]
     Active Substance: CLINDAMYCIN
  20. HYDROCODONE BITARTRATE AND ACETAMINOPHEN [Concomitant]
     Active Substance: ACETAMINOPHEN\HYDROCODONE BITARTRATE
  21. VYVANSE [Concomitant]
     Active Substance: LISDEXAMFETAMINE DIMESYLATE

REACTIONS (5)
  - Weight increased [Unknown]
  - Hyperphagia [Recovered/Resolved]
  - Sedation [Unknown]
  - Poor quality sleep [Unknown]
  - Hunger [Recovered/Resolved]
